FAERS Safety Report 25202978 (Version 1)
Quarter: 2025Q2

REPORT INFORMATION
  Report Type: Report from Study
  Country: US (occurrence: US)
  Receive Date: 20250416
  Receipt Date: 20250416
  Transmission Date: 20250717
  Serious: Yes (Hospitalization)
  Sender: AVERITAS
  Company Number: US-GRUNENTHAL-2025-105400

PATIENT
  Sex: Female

DRUGS (1)
  1. QUTENZA [Suspect]
     Active Substance: CAPSAICIN
     Indication: Diabetic vascular disorder
     Route: 061
     Dates: start: 20250224, end: 20250224

REACTIONS (5)
  - Pain [Recovering/Resolving]
  - Application site pain [Recovering/Resolving]
  - Oedema peripheral [Recovering/Resolving]
  - Oedema peripheral [Recovering/Resolving]
  - Application site oedema [Recovering/Resolving]

NARRATIVE: CASE EVENT DATE: 20250101
